FAERS Safety Report 15653395 (Version 1)
Quarter: 2018Q4

REPORT INFORMATION
  Report Type: Report from Study
  Country: CN (occurrence: CN)
  Receive Date: 20181124
  Receipt Date: 20181124
  Transmission Date: 20190205
  Serious: Yes (Death)
  Sender: FDA-Public Use
  Company Number: CN-ROCHE-1880631

PATIENT
  Sex: Male
  Weight: 60 kg

DRUGS (1)
  1. AVASTIN [Suspect]
     Active Substance: BEVACIZUMAB
     Indication: COLORECTAL CANCER
     Route: 041
     Dates: start: 20160818

REACTIONS (5)
  - Motion sickness [Unknown]
  - Drug ineffective [Unknown]
  - Disease progression [Fatal]
  - White blood cell count decreased [Unknown]
  - Drug resistance [Fatal]
